FAERS Safety Report 11246961 (Version 1)
Quarter: 2015Q3

REPORT INFORMATION
  Report Type: Spontaneous
  Country: US (occurrence: None)
  Receive Date: 20150706
  Receipt Date: 20150706
  Transmission Date: 20151125
  Serious: Yes (Death, Hospitalization)
  Sender: FDA-Public Use
  Company Number: 2015JUB00196

PATIENT
  Age: 41 Year
  Sex: Female

DRUGS (2)
  1. CARBAMAZEPINE (CARBAMAZEPINE) UNKNOWN [Suspect]
     Active Substance: CARBAMAZEPINE
     Route: 048
  2. VALPROIC ACID (VALPROIC ACID) UNKNOWN [Suspect]
     Active Substance: VALPROIC ACID
     Route: 048

REACTIONS (6)
  - Unresponsive to stimuli [None]
  - Haemodialysis [None]
  - Cardiac arrest [None]
  - Overdose [None]
  - Haemodynamic instability [None]
  - Brain death [None]
